FAERS Safety Report 8991072 (Version 1)
Quarter: 2012Q4

REPORT INFORMATION
  Report Type: Spontaneous
  Country: US (occurrence: None)
  Receive Date: 20121227
  Receipt Date: 20121227
  Transmission Date: 20130627
  Serious: Yes (Other)
  Sender: FDA-Public Use
  Company Number: None

PATIENT
  Age: 70 Year
  Sex: Female

DRUGS (9)
  1. LEVOTHYROXINE [Concomitant]
  2. HYDROCHLOROTHIAZIDE [Concomitant]
  3. MELOXICAM [Concomitant]
  4. HYDROXYZINE [Concomitant]
  5. REVLIMID 5 MG CELGENE [Suspect]
     Indication: MULTIPLE MYELOMA
     Dosage: x21/28 days
     Route: 048
     Dates: start: 201211, end: 201212
  6. DEXAMETHASONE [Concomitant]
  7. SPIRONOLACTONE [Concomitant]
  8. LISINOPRIL [Concomitant]
  9. SIMVASTATIN [Concomitant]

REACTIONS (8)
  - Pancytopenia [None]
  - Dyspnoea [None]
  - Decreased appetite [None]
  - Asthenia [None]
  - Headache [None]
  - Cough [None]
  - Chills [None]
  - Pyrexia [None]
